FAERS Safety Report 19707231 (Version 1)
Quarter: 2021Q3

REPORT INFORMATION
  Report Type: Report from Study
  Country: NL (occurrence: NL)
  Receive Date: 20210817
  Receipt Date: 20210817
  Transmission Date: 20211014
  Serious: Yes (Other)
  Sender: FDA-Public Use
  Company Number: NL-AMGEN-NLDSL2021103136

PATIENT
  Age: 66 Year
  Sex: Female

DRUGS (7)
  1. LETROZOL [Concomitant]
     Active Substance: LETROZOLE
     Dosage: 2.5 MILLIGRAM, QD
  2. APIXABAN [Concomitant]
     Active Substance: APIXABAN
     Dosage: 5 MILLIGRAM 2D1T
  3. EFFERVESCENT [Concomitant]
     Dosage: 1,25G/880IE (500MG CA) 1D1SA
  4. XGEVA [Suspect]
     Active Substance: DENOSUMAB
     Indication: PROPHYLAXIS
     Dosage: 120 MILLIGRAM PER MILLILITER (IN 1.7ML), Q4WK
     Route: 058
     Dates: start: 20210603
  5. XGEVA [Suspect]
     Active Substance: DENOSUMAB
     Dosage: 120 MILLIGRAM (IN 1.7ML), Q4WK
     Route: 058
     Dates: start: 20210603
  6. HYPROMELLOSE [Concomitant]
     Active Substance: HYPROMELLOSES
     Dosage: 3.2 MILLIGRAM (PER ML)
  7. CALCIUM CARBONATE;COLECALCIFEROL [Concomitant]
     Active Substance: CALCIUM CARBONATE\CHOLECALCIFEROL
     Dosage: 1.25 GRAM /880IE (500MG CA), QD

REACTIONS (4)
  - Osteitis [Unknown]
  - Fatigue [Not Recovered/Not Resolved]
  - Fall [Unknown]
  - Dizziness [Unknown]

NARRATIVE: CASE EVENT DATE: 202106
